FAERS Safety Report 4576908-3 (Version None)
Quarter: 2005Q1

REPORT INFORMATION
  Report Type: 
  Country: None (occurrence: None)
  Receive Date: 20050208
  Receipt Date: 20050126
  Transmission Date: 20050727
  Serious: Yes (Hospitalization)
  Sender: FDA-Public Use
  Company Number: 23100214

PATIENT
  Age: 71 Year
  Sex: Male

DRUGS (13)
  1. ARGATROBAN [Suspect]
     Indication: CEREBRAL INFARCTION
     Dosage: 40 MG QD IV
     Route: 042
     Dates: start: 20050104, end: 20050104
  2. ARGATROBAN [Suspect]
     Indication: CEREBRAL INFARCTION
     Dosage: 60 MG QD IV
     Route: 042
     Dates: start: 20050105, end: 20050105
  3. ARGATROBAN [Suspect]
     Indication: CEREBRAL INFARCTION
     Dosage: 20 MG QD IV
     Route: 042
     Dates: start: 20050106, end: 20050106
  4. RADICUT (EDARAVONE) [Suspect]
     Indication: CEREBRAL INFARCTION
     Dosage: 30 MG BID IV
     Route: 042
     Dates: start: 20050104, end: 20050111
  5. NICHOLIN (CITICOLINE) [Suspect]
     Indication: CEREBRAL INFARCTION
     Dosage: 1 G QD IV
     Route: 042
     Dates: start: 20050104, end: 20050105
  6. ZANTAC [Suspect]
     Indication: GASTROINTESTINAL HAEMORRHAGE
     Dosage: 4 ML BID IV
     Route: 042
     Dates: start: 20050104, end: 20050106
  7. SOLCOSERYL [Concomitant]
  8. SOLITA-T1 INJECTION [Concomitant]
  9. MAC ACMIN [Concomitant]
  10. AMICALIQ [Concomitant]
  11. SEISHOKU [Concomitant]
  12. GLYCEOL [Concomitant]
  13. VEEN-3G [Concomitant]

REACTIONS (3)
  - CHOLELITHIASIS [None]
  - HEPATITIS VIRAL [None]
  - JAUNDICE CHOLESTATIC [None]
